FAERS Safety Report 6780761-7 (Version None)
Quarter: 2010Q2

REPORT INFORMATION
  Report Type: 
  Country: None (occurrence: None)
  Receive Date: 20100621
  Receipt Date: 20100614
  Transmission Date: 20101027
  Serious: Yes (Hospitalization)
  Sender: FDA-Public Use
  Company Number: DE-JNJFOC-20100603815

PATIENT
  Age: 60 Year
  Sex: Male
  Weight: 60 kg

DRUGS (20)
  1. DURAGESIC-100 [Suspect]
     Indication: DRUG USE FOR UNKNOWN INDICATION
     Route: 062
  2. DURAGESIC-100 [Suspect]
     Route: 062
  3. BROMAZEPAM [Suspect]
     Indication: DRUG USE FOR UNKNOWN INDICATION
     Route: 048
  4. ATOSIL [Suspect]
     Indication: DRUG USE FOR UNKNOWN INDICATION
     Route: 048
     Dates: end: 20070808
  5. LACTULOSE [Concomitant]
     Route: 065
     Dates: start: 20070806
  6. CREON [Concomitant]
     Route: 065
  7. CREON [Concomitant]
     Route: 065
  8. VITAMIN B1 TAB [Concomitant]
     Route: 042
     Dates: start: 20070806, end: 20070808
  9. KALINOR-BRAUSETABLETTEN [Concomitant]
     Route: 048
     Dates: start: 20070808
  10. CLEXANE [Concomitant]
     Route: 058
     Dates: start: 20070806, end: 20070817
  11. MSI [Concomitant]
     Route: 058
     Dates: start: 20070808, end: 20070812
  12. NOVAMINSULFON [Concomitant]
     Route: 048
     Dates: start: 20070806
  13. AMITRIPTYLINE HCL [Concomitant]
     Route: 048
     Dates: start: 20070809
  14. AMITRIPTYLINE HCL [Concomitant]
     Route: 048
     Dates: start: 20070809
  15. AMITRIPTYLINE HCL [Concomitant]
     Route: 048
     Dates: start: 20070809
  16. HERBAL PREPARATION [Concomitant]
     Route: 058
     Dates: start: 20070806, end: 20070809
  17. HELIXOR [Concomitant]
     Route: 058
     Dates: start: 20070819
  18. ANTIMONY [Concomitant]
     Route: 048
     Dates: start: 20070810
  19. ANTIMONY [Concomitant]
     Route: 042
     Dates: start: 20070807, end: 20070810
  20. ALBUMIN (HUMAN) [Concomitant]
     Route: 042
     Dates: start: 20070806, end: 20070811

REACTIONS (3)
  - DEPRESSED LEVEL OF CONSCIOUSNESS [None]
  - DISORIENTATION [None]
  - HYPOKINESIA [None]
